FAERS Safety Report 10922564 (Version 1)
Quarter: 2015Q1

REPORT INFORMATION
  Report Type: Spontaneous
  Country: CZ (occurrence: CZ)
  Receive Date: 20150317
  Receipt Date: 20150317
  Transmission Date: 20150721
  Serious: Yes (Other)
  Sender: FDA-Public Use
  Company Number: CZ-SA-2015SA032679

PATIENT
  Age: 49 Year
  Sex: Female

DRUGS (14)
  1. ARAVA [Suspect]
     Active Substance: LEFLUNOMIDE
     Indication: RHEUMATOID ARTHRITIS
     Route: 048
     Dates: start: 201402, end: 201404
  2. CALCIUM [Concomitant]
     Active Substance: CALCIUM
     Dosage: 1X
  3. HUMIRA [Concomitant]
     Active Substance: ADALIMUMAB
  4. CIMZIA [Concomitant]
     Active Substance: CERTOLIZUMAB PEGOL
  5. MEDROL [Concomitant]
     Active Substance: METHYLPREDNISOLONE
     Indication: RHEUMATOID ARTHRITIS
     Dosage: 12 MG
     Route: 048
     Dates: start: 2012
  6. HELICID [Concomitant]
     Dosage: 1X
  7. METOJECT [Concomitant]
     Active Substance: METHOTREXATE SODIUM
     Indication: RHEUMATOID ARTHRITIS
     Dosage: 1X
     Dates: start: 2012
  8. TRAMADOL/PARACETAMOL [Concomitant]
  9. VIGANTOL [Concomitant]
     Dosage: VITAMIN D3 1X WEEKLY
  10. METOJECT [Concomitant]
     Active Substance: METHOTREXATE SODIUM
     Indication: RHEUMATOID ARTHRITIS
     Dosage: 50 MG/ML INJECTION
     Dates: start: 2012
  11. SULFASALAZINE. [Concomitant]
     Active Substance: SULFASALAZINE
     Dosage: 2X
  12. MEDROL [Concomitant]
     Active Substance: METHYLPREDNISOLONE
     Indication: RHEUMATOID ARTHRITIS
     Dates: start: 2012
  13. MELOXICAM. [Concomitant]
     Active Substance: MELOXICAM
  14. ACIDUM FOLICUM [Concomitant]
     Active Substance: FOLIC ACID
     Dosage: 2TBL

REACTIONS (2)
  - Leukopenia [Recovered/Resolved]
  - Liver function test abnormal [Recovering/Resolving]

NARRATIVE: CASE EVENT DATE: 2014
